FAERS Safety Report 7139243-5 (Version None)
Quarter: 2010Q4

REPORT INFORMATION
  Report Type: 
  Country: None (occurrence: None)
  Receive Date: 20101206
  Receipt Date: 20101126
  Transmission Date: 20110411
  Serious: Yes (Hospitalization)
  Sender: FDA-Public Use
  Company Number: AU-ROCHE-744944

PATIENT
  Sex: Male

DRUGS (3)
  1. PEGINTERFERON ALFA-2A [Suspect]
     Indication: HEPATITIS C
     Dosage: FREQUENCY: WEEKLY
     Route: 058
     Dates: start: 20100218
  2. RIBAVIRIN [Suspect]
     Indication: HEPATITIS C
     Dosage: DOSE: 3 PER MORNING AND EVENING
     Route: 048
     Dates: start: 20100215
  3. BLINDED TMC435 [Suspect]
     Indication: HEPATITIS C
     Dosage: DOSE: BLINDED, FREQUENCY: QD
     Route: 048
     Dates: start: 20100215

REACTIONS (1)
  - CHOLECYSTITIS [None]
